FAERS Safety Report 9065761 (Version 1)
Quarter: 2013Q1

REPORT INFORMATION
  Report Type: Spontaneous
  Country: US (occurrence: US)
  Receive Date: 20130214
  Receipt Date: 20130214
  Transmission Date: 20140127
  Serious: No
  Sender: FDA-Public Use
  Company Number: US-BAYER-2013-011784

PATIENT
  Sex: Female

DRUGS (2)
  1. CIPRO [Suspect]
     Indication: BRONCHITIS
  2. Z-PAK [Suspect]
     Indication: BRONCHITIS

REACTIONS (2)
  - Anosmia [None]
  - Ageusia [None]
